FAERS Safety Report 8182327-3 (Version None)
Quarter: 2012Q1

REPORT INFORMATION
  Report Type: 
  Country: None (occurrence: None)
  Receive Date: 20120302
  Receipt Date: 20120229
  Transmission Date: 20120608
  Serious: Yes (Death)
  Sender: FDA-Public Use
  Company Number: PHHY2012CA015319

PATIENT
  Sex: Female

DRUGS (11)
  1. LOPERAMIDE HCL [Concomitant]
     Dosage: UNK UKN, UNK
  2. PERICIAZINE [Concomitant]
     Dosage: 80 MG, UNK
  3. FLUTICASONE PROPIONATE [Concomitant]
     Dosage: UNK UKN, UNK
  4. APO-SALVENT [Concomitant]
     Dosage: UNK UKN, UNK
  5. CLONAZEPAM [Concomitant]
     Dosage: UNK UKN, UNK
  6. OMEPRAZOLE [Concomitant]
     Dosage: 70 MG, UNK
  7. SPIRIVA [Concomitant]
     Dosage: UNK UKN, UNK
  8. LYRICA [Concomitant]
     Dosage: 100 MG, UNK
  9. ZOLEDRONOC ACID [Suspect]
     Indication: OSTEOPOROSIS
     Dosage: UNK UKN, UNK
     Route: 042
     Dates: start: 20110506
  10. TRAZODONE HCL [Concomitant]
     Dosage: 150 MG, UNK
  11. VENTOLIN [Concomitant]
     Dosage: UNK UKN, UNK

REACTIONS (1)
  - DEATH [None]
